FAERS Safety Report 16219969 (Version 1)
Quarter: 2019Q2

REPORT INFORMATION
  Report Type: Spontaneous
  Country: JP (occurrence: JP)
  Receive Date: 20190420
  Receipt Date: 20190420
  Transmission Date: 20190711
  Serious: Yes (Life-Threatening, Hospitalization, Other)
  Sender: FDA-Public Use
  Company Number: JP-ACCORD-122792

PATIENT
  Age: 75 Year
  Sex: Male

DRUGS (6)
  1. LEVETIRACETAM. [Suspect]
     Active Substance: LEVETIRACETAM
     Indication: TULARAEMIA
  2. MIDAZOLAM [Concomitant]
     Active Substance: MIDAZOLAM HYDROCHLORIDE
     Dosage: UNDER MECHANICAL VENTILATION
  3. PHENOBARBITAL. [Suspect]
     Active Substance: PHENOBARBITAL
     Indication: TULARAEMIA
  4. EDARAVONE [Concomitant]
     Active Substance: EDARAVONE
     Indication: ISCHAEMIC STROKE
  5. DIAZEPAM. [Suspect]
     Active Substance: DIAZEPAM
     Indication: TULARAEMIA
  6. FOSPHENYTOIN [Suspect]
     Active Substance: FOSPHENYTOIN
     Indication: TULARAEMIA

REACTIONS (1)
  - Blood pressure decreased [Recovering/Resolving]
